FAERS Safety Report 6293250-3 (Version None)
Quarter: 2009Q3

REPORT INFORMATION
  Report Type: 
  Country: None (occurrence: None)
  Receive Date: 20090731
  Receipt Date: 20090721
  Transmission Date: 20100115
  Serious: Yes (Other)
  Sender: FDA-Public Use
  Company Number: IE-ABBOTT-09P-229-0586559-00

PATIENT
  Age: 23 Year
  Sex: Female

DRUGS (1)
  1. EPILIM TABLETS [Suspect]
     Indication: EPILEPSY
     Dates: start: 19730101, end: 19830101

REACTIONS (1)
  - DEEP VEIN THROMBOSIS [None]
